FAERS Safety Report 7636260-3 (Version None)
Quarter: 2011Q3

REPORT INFORMATION
  Report Type: 
  Country: None (occurrence: None)
  Receive Date: 20110726
  Receipt Date: 20110626
  Transmission Date: 20111222
  Serious: Yes (Other)
  Sender: FDA-Public Use
  Company Number: SG-BAYER-2011-055023

PATIENT
  Age: 46 Year
  Sex: Male

DRUGS (4)
  1. MEFENAMIC ACID [Suspect]
  2. MEFENAMIC ACID [Suspect]
  3. ASPIRIN [Suspect]
  4. PHENOXYMETHYL PENICILLIN [Suspect]

REACTIONS (1)
  - RASH [None]
